FAERS Safety Report 7324305-X (Version None)
Quarter: 2011Q1

REPORT INFORMATION
  Report Type: 
  Country: None (occurrence: None)
  Receive Date: 20110301
  Receipt Date: 20110223
  Transmission Date: 20110831
  Serious: Yes (Other)
  Sender: FDA-Public Use
  Company Number: US-AMGEN-USASP2011010660

PATIENT
  Sex: Female

DRUGS (3)
  1. NPLATE [Suspect]
     Indication: IDIOPATHIC THROMBOCYTOPENIC PURPURA
     Dates: start: 20090804
  2. DECADRON [Concomitant]
  3. CORTICOSTEROIDS [Concomitant]

REACTIONS (2)
  - HAEMATOLOGICAL MALIGNANCY [None]
  - BIOPSY BONE MARROW ABNORMAL [None]
